FAERS Safety Report 15939055 (Version 1)
Quarter: 2019Q1

REPORT INFORMATION
  Report Type: Spontaneous
  Country: US (occurrence: US)
  Receive Date: 20190208
  Receipt Date: 20190208
  Transmission Date: 20190417
  Serious: No
  Sender: FDA-Public Use
  Company Number: US-PFIZER INC-2019056662

PATIENT
  Age: 90 Year
  Sex: Male

DRUGS (5)
  1. ZITHROMAX [Suspect]
     Active Substance: AZITHROMYCIN DIHYDRATE
     Indication: THROAT IRRITATION
  2. ZITHROMAX [Suspect]
     Active Substance: AZITHROMYCIN DIHYDRATE
     Indication: INFECTION
     Dosage: 500 MG, (ON DAY 1)
     Dates: start: 20190102
  3. ZITHROMAX [Suspect]
     Active Substance: AZITHROMYCIN DIHYDRATE
     Indication: OROPHARYNGEAL PAIN
     Dosage: 250 MG, (DAILY ON DAYS 2-5)
  4. ZITHROMAX [Suspect]
     Active Substance: AZITHROMYCIN DIHYDRATE
     Indication: PHARYNGEAL OEDEMA
  5. ZITHROMAX [Suspect]
     Active Substance: AZITHROMYCIN DIHYDRATE
     Indication: UPPER-AIRWAY COUGH SYNDROME

REACTIONS (1)
  - Drug ineffective [Unknown]
